FAERS Safety Report 5798252-9 (Version None)
Quarter: 2008Q3

REPORT INFORMATION
  Report Type: 
  Country: None (occurrence: None)
  Receive Date: 20080702
  Receipt Date: 20080624
  Transmission Date: 20090109
  Serious: Yes (Life-Threatening, Hospitalization, Other)
  Sender: FDA-Public Use
  Company Number: ES-JNJFOC-20080505987

PATIENT
  Age: 4 Decade
  Sex: Male

DRUGS (5)
  1. REMICADE [Suspect]
     Route: 042
  2. REMICADE [Suspect]
     Indication: COLITIS ULCERATIVE
     Dosage: TOTAL # OF DOSES: 3
     Route: 042
  3. AZATHIOPRINE [Concomitant]
     Indication: COLITIS ULCERATIVE
     Dosage: DURATION: 2 YEARS
     Route: 048
  4. METHYLPREDNISOLONE [Concomitant]
     Indication: DRUG USE FOR UNKNOWN INDICATION
     Dosage: DESCENDING DOSES
     Route: 048
  5. MESALAMINE [Concomitant]
     Indication: COLITIS ULCERATIVE
     Route: 048

REACTIONS (2)
  - ASPERGILLOSIS [None]
  - ASTHMA [None]
